FAERS Safety Report 4685899-6 (Version None)
Quarter: 2005Q2

REPORT INFORMATION
  Report Type: 
  Country: None (occurrence: None)
  Receive Date: 20050607
  Receipt Date: 20050607
  Transmission Date: 20051028
  Serious: Yes (Hospitalization)
  Sender: FDA-Public Use
  Company Number: None

PATIENT
  Age: 49 Year
  Sex: Male
  Weight: 81.6475 kg

DRUGS (2)
  1. LIDOCAINE HYDROCHLORIDE W/ EPINEPHRINE 1:100,000 INJ [Suspect]
     Indication: BIOPSY MUSCLE
     Dosage: 1-2 CC EVERY 30-40 SE SUBCUTANEOUS
     Route: 058
     Dates: start: 20050606, end: 20050606
  2. LIDOCAINE HYDROCHLORIDE W/ EPINEPHRINE 1:100,000 INJ [Suspect]
     Indication: LOCAL ANAESTHESIA
     Dosage: 1-2 CC EVERY 30-40 SE SUBCUTANEOUS
     Route: 058
     Dates: start: 20050606, end: 20050606

REACTIONS (10)
  - DEFAECATION URGENCY [None]
  - DYSARTHRIA [None]
  - DYSPNOEA [None]
  - FLUSHING [None]
  - HYPERHIDROSIS [None]
  - INJECTION SITE PAIN [None]
  - LACRIMATION INCREASED [None]
  - PHARMACEUTICAL PRODUCT COMPLAINT [None]
  - PROCEDURAL COMPLICATION [None]
  - TACHYCARDIA [None]
